FAERS Safety Report 8181720-2 (Version None)
Quarter: 2012Q1

REPORT INFORMATION
  Report Type: 
  Country: None (occurrence: None)
  Receive Date: 20120302
  Receipt Date: 20120222
  Transmission Date: 20120608
  Serious: Yes (Life-Threatening)
  Sender: FDA-Public Use
  Company Number: JP-BAYER-201012280BYL

PATIENT
  Age: 3 Year
  Sex: Male

DRUGS (9)
  1. ASPIRIN [Suspect]
     Dosage: DAILY DOSE 30 MG/KG
     Route: 048
  2. FLURBIPROFEN [Suspect]
     Indication: KAWASAKI'S DISEASE
     Dosage: DAILY DOSE 5 MG/KG
     Route: 048
  3. ASPIRIN [Suspect]
     Indication: KAWASAKI'S DISEASE
     Dosage: DAILY DOSE 5 MG/KG
     Route: 048
  4. AMOXICILLIN [Suspect]
     Indication: KAWASAKI'S DISEASE
     Route: 048
  5. IMMUNE GLOBULIN INTRAVENOUS (HUMAN) [Concomitant]
     Indication: KAWASAKI'S DISEASE
     Dosage: DAILY DOSE 2000 MG/KG
     Route: 042
  6. CEFMETAZOLE SODIUM [Suspect]
     Indication: KAWASAKI'S DISEASE
  7. FLURBIPROFEN [Suspect]
  8. ACETAMINOPHEN [Suspect]
     Indication: KAWASAKI'S DISEASE
     Dosage: UNK
     Route: 048
  9. IMMUNE GLOBULIN INTRAVENOUS (HUMAN) [Concomitant]

REACTIONS (1)
  - TOXIC EPIDERMAL NECROLYSIS [None]
